FAERS Safety Report 8391943-5 (Version None)
Quarter: 2012Q2

REPORT INFORMATION
  Report Type: 
  Country: None (occurrence: None)
  Receive Date: 20120529
  Receipt Date: 20120521
  Transmission Date: 20120825
  Serious: Yes (Other)
  Sender: FDA-Public Use
  Company Number: SE-GLAXOSMITHKLINE-B0803839A

PATIENT
  Sex: Female

DRUGS (2)
  1. TEGRETOL [Concomitant]
     Dosage: 4TABS PER DAY
  2. LAMICTAL [Suspect]
     Indication: PRODUCT USED FOR UNKNOWN INDICATION
     Dosage: 50MG FOUR TIMES PER DAY
     Route: 065

REACTIONS (11)
  - INTRACRANIAL PRESSURE INCREASED [None]
  - LUNG DISORDER [None]
  - HEADACHE [None]
  - LYMPHADENOPATHY [None]
  - ALOPECIA [None]
  - MOOD SWINGS [None]
  - EAR HAEMORRHAGE [None]
  - TINNITUS [None]
  - CHEST PAIN [None]
  - RENAL DISORDER [None]
  - EPISTAXIS [None]
